FAERS Safety Report 6096534-7 (Version None)
Quarter: 2009Q1

REPORT INFORMATION
  Report Type: 
  Country: None (occurrence: None)
  Receive Date: 20090227
  Receipt Date: 20090218
  Transmission Date: 20090719
  Serious: Yes (Hospitalization)
  Sender: FDA-Public Use
  Company Number: NL-SANOFI-SYNTHELABO-A01200901753

PATIENT
  Sex: Female

DRUGS (3)
  1. AVASTIN [Suspect]
     Indication: COLON CANCER
     Dosage: UNK
     Route: 042
     Dates: start: 20090201, end: 20090201
  2. XELODA [Suspect]
     Indication: COLON CANCER
     Dosage: UNK
     Route: 048
     Dates: start: 20090201, end: 20090201
  3. OXALIPLATIN [Suspect]
     Indication: COLON CANCER
     Dosage: UNK
     Route: 042
     Dates: start: 20090201, end: 20090201

REACTIONS (1)
  - CARDIOMYOPATHY [None]
